FAERS Safety Report 21700039 (Version 1)
Quarter: 2022Q4

REPORT INFORMATION
  Report Type: Spontaneous
  Country: US (occurrence: None)
  Receive Date: 20221207
  Receipt Date: 20221207
  Transmission Date: 20230112
  Serious: Yes (Hospitalization, Other)
  Sender: FDA-Public Use
  Company Number: None

PATIENT
  Age: 42 Year
  Sex: Female
  Weight: 75.15 kg

DRUGS (6)
  1. NP THYROID [Suspect]
     Active Substance: LEVOTHYROXINE\LIOTHYRONINE
     Indication: Hypothyroidism
     Dosage: OTHER QUANTITY : 30 TABLET(S);?
     Route: 048
  2. METFORMIN [Concomitant]
     Active Substance: METFORMIN HYDROCHLORIDE
  3. NP THYROID [Concomitant]
  4. SYNTHROID [Concomitant]
     Active Substance: LEVOTHYROXINE SODIUM
  5. VITAMINS [Concomitant]
     Active Substance: VITAMINS
  6. PROBIOTICS NOS [Concomitant]
     Active Substance: PROBIOTICS NOS

REACTIONS (5)
  - Recalled product administered [None]
  - Therapy interrupted [None]
  - Blood thyroid stimulating hormone decreased [None]
  - Anxiety [None]
  - COVID-19 [None]

NARRATIVE: CASE EVENT DATE: 20221111
